FAERS Safety Report 14803107 (Version 1)
Quarter: 2018Q2

REPORT INFORMATION
  Report Type: Spontaneous
  Country: US (occurrence: US)
  Receive Date: 20180424
  Receipt Date: 20180424
  Transmission Date: 20180711
  Serious: Yes (Other)
  Sender: FDA-Public Use
  Company Number: US-NAPPMUNDI-USA-2018-0143199

PATIENT
  Sex: Female

DRUGS (2)
  1. OXYCODONE HYDROCHLORIDE. [Suspect]
     Active Substance: OXYCODONE HYDROCHLORIDE
     Indication: PAIN
     Dosage: 5 MG (1-2 TABLETS), Q8H PRN
     Route: 048
  2. GABAPENTIN. [Concomitant]
     Active Substance: GABAPENTIN
     Dosage: 2 X 300 MG, AM
     Route: 048

REACTIONS (3)
  - Inadequate analgesia [Unknown]
  - Drug dependence [Unknown]
  - Restlessness [Unknown]

NARRATIVE: CASE EVENT DATE: 2017
